FAERS Safety Report 4526382-8 (Version None)
Quarter: 2004Q4

REPORT INFORMATION
  Report Type: 
  Country: None (occurrence: None)
  Receive Date: 20041210
  Receipt Date: 20041203
  Transmission Date: 20050328
  Serious: Yes (Hospitalization)
  Sender: FDA-Public Use
  Company Number: DEWYE884707JUL04

PATIENT
  Age: 6 Week
  Sex: Female

DRUGS (6)
  1. VENLAFAXINE HCL [Suspect]
     Indication: DEPRESSION
     Dosage: SEE IMAGE
     Route: 048
     Dates: start: 20040116, end: 20040701
  2. VENLAFAXINE HCL [Suspect]
     Indication: DEPRESSION
     Dosage: SEE IMAGE
     Route: 048
     Dates: start: 20040101
  3. EISEN-II-SULFAT (FERROUS SULFATE) [Concomitant]
  4. MAGNESIUM (MAGNESIUM) [Concomitant]
  5. FOLIC ACID [Concomitant]
  6. PARTUSISTEN (FENOTEROL HYDROBROMIDE) [Concomitant]

REACTIONS (7)
  - ANAEMIA NEONATAL [None]
  - BONE MARROW DEPRESSION [None]
  - DRUG EXPOSURE DURING PREGNANCY [None]
  - DRUG EXPOSURE VIA BREAST MILK [None]
  - NEONATAL DISORDER [None]
  - PALLOR [None]
  - SMALL FOR DATES BABY [None]
